FAERS Safety Report 8062997-0 (Version None)
Quarter: 2012Q1

REPORT INFORMATION
  Report Type: 
  Country: None (occurrence: None)
  Receive Date: 20120123
  Receipt Date: 20120118
  Transmission Date: 20120608
  Serious: Yes (Other)
  Sender: FDA-Public Use
  Company Number: US-PFIZER INC-2012003637

PATIENT
  Sex: Female

DRUGS (5)
  1. LIPITOR [Suspect]
     Dosage: UNK
  2. NORVASC [Suspect]
     Dosage: UNK
  3. NITROSTAT [Suspect]
     Dosage: UNK
  4. RAPAMUNE [Suspect]
     Dosage: UNK
  5. INDERAL [Suspect]
     Dosage: UNK

REACTIONS (8)
  - EXPIRED DRUG ADMINISTERED [None]
  - CARDIAC OPERATION [None]
  - BONE LOSS [None]
  - GASTROOESOPHAGEAL REFLUX DISEASE [None]
  - HEARING IMPAIRED [None]
  - RENAL TRANSPLANT [None]
  - CHEST PAIN [None]
  - RENAL HYPERTROPHY [None]
